FAERS Safety Report 9014721 (Version 1)
Quarter: 2013Q1

REPORT INFORMATION
  Report Type: Spontaneous
  Country: US (occurrence: US)
  Receive Date: 20130115
  Receipt Date: 20130115
  Transmission Date: 20140127
  Serious: No
  Sender: FDA-Public Use
  Company Number: US-009507513-1301USA006153

PATIENT
  Sex: Female

DRUGS (3)
  1. FARESTON [Suspect]
     Dosage: UNK
     Dates: start: 201207, end: 201210
  2. FARESTON [Suspect]
     Dosage: HALF A TABLET
     Dates: start: 201210
  3. CARBAMAZEPINE [Concomitant]

REACTIONS (2)
  - Hypersomnia [Not Recovered/Not Resolved]
  - Feeling abnormal [Not Recovered/Not Resolved]
